FAERS Safety Report 23184961 (Version 1)
Quarter: 2023Q4

REPORT INFORMATION
  Report Type: Spontaneous
  Country: US (occurrence: US)
  Receive Date: 20231115
  Receipt Date: 20231115
  Transmission Date: 20240109
  Serious: Yes (Other)
  Sender: FDA-Public Use
  Company Number: US-BRISTOL-MYERS SQUIBB COMPANY-2023-161897

PATIENT
  Age: 65 Year
  Sex: Female

DRUGS (1)
  1. REVLIMID [Suspect]
     Active Substance: LENALIDOMIDE
     Indication: Bone cancer
     Dosage: 10 MG QD
     Route: 048

REACTIONS (5)
  - COVID-19 [Recovering/Resolving]
  - Neuropathy peripheral [Unknown]
  - Arthritis [Unknown]
  - Seasonal allergy [Unknown]
  - Off label use [Unknown]
